FAERS Safety Report 23798745 (Version 2)
Quarter: 2024Q2

REPORT INFORMATION
  Report Type: Spontaneous
  Country: US (occurrence: US)
  Receive Date: 20240430
  Receipt Date: 20240529
  Transmission Date: 20240716
  Serious: No
  Sender: FDA-Public Use
  Company Number: US-MYLANLABS-2024M1031336

PATIENT
  Sex: Female
  Weight: 68.03 kg

DRUGS (1)
  1. TYRVAYA [Suspect]
     Active Substance: VARENICLINE TARTRATE
     Indication: Dry eye
     Dosage: 0.03 MILLIGRAM, BID (1 SPRAY IN EACH NOSTRIL 2 TIMES A DAY APPROXIMATELY 12 HOURS APART)
     Route: 045

REACTIONS (1)
  - Sneezing [Unknown]
